FAERS Safety Report 17202134 (Version 2)
Quarter: 2019Q4

REPORT INFORMATION
  Report Type: Spontaneous
  Country: TR (occurrence: TR)
  Receive Date: 20191226
  Receipt Date: 20191231
  Transmission Date: 20200122
  Serious: Yes (Hospitalization)
  Sender: FDA-Public Use
  Company Number: TR-PFIZER INC-2019546559

PATIENT
  Age: 23 Year
  Sex: Female

DRUGS (4)
  1. DACARBAZINE. [Suspect]
     Active Substance: DACARBAZINE
     Indication: HODGKIN^S DISEASE NODULAR SCLEROSIS STAGE IV
     Dosage: 375 MG/M2, CYCLIC, (FIVE COURSES, GIVEN AT 4-WEEK INTERVALS)
     Route: 042
     Dates: end: 2008
  2. ADRIAMYCIN [Suspect]
     Active Substance: DOXORUBICIN HYDROCHLORIDE
     Indication: HODGKIN^S DISEASE NODULAR SCLEROSIS STAGE IV
     Dosage: 25 MG/M2, CYCLIC, (FIVE COURSES, GIVEN AT 4-WEEK INTERVALS)
     Route: 042
     Dates: end: 2008
  3. VINCRISTINE SULFATE. [Suspect]
     Active Substance: VINCRISTINE SULFATE
     Indication: HODGKIN^S DISEASE NODULAR SCLEROSIS STAGE IV
     Dosage: 1.4 MG/M2, CYCLIC (FIVE COURSES, GIVEN AT 4-WEEK INTERVALS)
     Route: 042
     Dates: end: 2008
  4. BLEOMYCIN [Suspect]
     Active Substance: BLEOMYCIN SULFATE
     Indication: HODGKIN^S DISEASE NODULAR SCLEROSIS STAGE IV
     Dosage: 10 MG/M2, CYCLIC (FIVE COURSES, GIVEN AT 4-WEEK INTERVALS)
     Route: 042
     Dates: end: 2008

REACTIONS (2)
  - Hepatitis C [Recovered/Resolved]
  - Hepatotoxicity [Recovered/Resolved]

NARRATIVE: CASE EVENT DATE: 200710
